FAERS Safety Report 10564645 (Version 2)
Quarter: 2015Q1

REPORT INFORMATION
  Report Type: Spontaneous
  Country: IT (occurrence: IT)
  Receive Date: 20141104
  Receipt Date: 20150311
  Transmission Date: 20150720
  Serious: Yes (Other)
  Sender: FDA-Public Use
  Company Number: IT-AMGEN-ITASP2014084161

PATIENT
  Age: 47 Year
  Sex: Female

DRUGS (1)
  1. MIMPARA [Suspect]
     Active Substance: CINACALCET HYDROCHLORIDE
     Indication: HYPERPARATHYROIDISM PRIMARY
     Dosage: 30 MG, BID
     Route: 048
     Dates: start: 201402, end: 201406

REACTIONS (1)
  - Parathyroid tumour benign [Recovered/Resolved]

NARRATIVE: CASE EVENT DATE: 201406
